FAERS Safety Report 10647422 (Version 4)
Quarter: 2015Q3

REPORT INFORMATION
  Report Type: Report from Study
  Country: US (occurrence: US)
  Receive Date: 20141211
  Receipt Date: 20150820
  Transmission Date: 20151125
  Serious: Yes (Hospitalization, Other)
  Sender: FDA-Public Use
  Company Number: US-GILEAD-2014-0126814

PATIENT
  Age: 70 Year
  Sex: Female
  Weight: 71 kg

DRUGS (33)
  1. AMBRISENTAN [Suspect]
     Active Substance: AMBRISENTAN
     Indication: RESTRICTIVE PULMONARY DISEASE
  2. ATENOLOL. [Suspect]
     Active Substance: ATENOLOL
     Indication: PRODUCT USED FOR UNKNOWN INDICATION
     Route: 065
  3. OXYGEN. [Concomitant]
     Active Substance: OXYGEN
  4. LIPITOR [Concomitant]
     Active Substance: ATORVASTATIN CALCIUM
     Dosage: 20 MG, QHS
     Route: 048
  5. LASIX [Concomitant]
     Active Substance: FUROSEMIDE
     Dosage: 40 MG, BID
     Route: 048
  6. MULTIVITAMIN AND MINERAL [Concomitant]
     Dosage: 1 DF, QD
     Route: 048
  7. PROTONIX [Concomitant]
     Active Substance: PANTOPRAZOLE SODIUM
     Dosage: 40 MG, QD
     Route: 048
  8. TIKOSYN [Suspect]
     Active Substance: DOFETILIDE
     Indication: PRODUCT USED FOR UNKNOWN INDICATION
     Dosage: 500 UG, BID
     Route: 048
     Dates: start: 20150502
  9. ECOTRIN [Concomitant]
     Active Substance: ASPIRIN
     Dosage: 81 MG, QD
     Route: 048
  10. VOLTAREN [Concomitant]
     Active Substance: DICLOFENAC SODIUM
     Dosage: 4 G, BID
     Route: 061
  11. FERROUS SULFATE [Concomitant]
     Active Substance: FERROUS SULFATE\FERROUS SULFATE, DRIED
     Dosage: 325 MG, BID
     Route: 048
  12. MUCINEX [Concomitant]
     Active Substance: GUAIFENESIN
     Dosage: 600 MG, BID PRN
     Route: 048
  13. NORCO [Concomitant]
     Active Substance: ACETAMINOPHEN\HYDROCODONE BITARTRATE
     Dosage: 1 DF, QID PRN
     Route: 048
  14. TIKOSYN [Suspect]
     Active Substance: DOFETILIDE
     Dosage: 375 UG, BID
     Route: 048
     Dates: end: 20150506
  15. ALDACTONE [Concomitant]
     Active Substance: SPIRONOLACTONE
     Dosage: 25 MG, QD
     Route: 048
  16. ADVAIR HFA [Concomitant]
     Active Substance: FLUTICASONE PROPIONATE\SALMETEROL XINAFOATE
     Dosage: 1 DF, BID
     Route: 055
  17. LACTULOSE. [Concomitant]
     Active Substance: LACTULOSE
     Dosage: 10-20 G QD PRN
     Route: 048
  18. COUMADIN [Concomitant]
     Active Substance: WARFARIN SODIUM
     Dosage: UNK
     Route: 048
  19. ALBUTEROL                          /00139501/ [Concomitant]
     Active Substance: ALBUTEROL
     Dosage: 180 UG, Q4HR
     Route: 055
  20. VALIUM [Concomitant]
     Active Substance: DIAZEPAM
     Dosage: 2-4 MG Q6H PRN
     Route: 048
  21. KLOR-CON M10 [Concomitant]
     Active Substance: POTASSIUM CHLORIDE
     Dosage: 40 MEQ, QD
     Route: 048
  22. COUMADIN [Concomitant]
     Active Substance: WARFARIN SODIUM
     Dosage: 6 MG, QD
     Route: 048
  23. CLARITIN [Concomitant]
     Active Substance: LORATADINE
     Dosage: 10 MG, QD
     Route: 048
  24. SENOKOT                            /00936101/ [Concomitant]
     Active Substance: DOCUSATE SODIUM\SENNOSIDES A AND B
     Dosage: 2-4 TABS BID PRN
     Route: 048
  25. ADCIRCA [Concomitant]
     Active Substance: TADALAFIL
     Dosage: 20 MG, QD
     Route: 048
  26. AMBRISENTAN [Suspect]
     Active Substance: AMBRISENTAN
     Indication: PULMONARY ARTERIAL HYPERTENSION
     Dosage: 10 MG, QD
     Route: 048
     Dates: start: 20090625
  27. TIKOSYN [Suspect]
     Active Substance: DOFETILIDE
     Dosage: 375 UG, BID
     Route: 048
     Dates: start: 201505
  28. ASCORBIC ACID. [Concomitant]
     Active Substance: ASCORBIC ACID
     Dosage: 500 MG, BID
     Route: 048
  29. CELEBREX [Concomitant]
     Active Substance: CELECOXIB
     Dosage: 200 MG, QD
     Route: 048
  30. VITAMIN D3 [Concomitant]
     Active Substance: CHOLECALCIFEROL
     Dosage: 1000 U QD
     Route: 048
  31. COLACE [Concomitant]
     Active Substance: DOCUSATE SODIUM
     Dosage: 400 MG, BID
     Route: 048
  32. PEPCID [Concomitant]
     Active Substance: FAMOTIDINE
     Dosage: 10 MG, QD
     Route: 048
  33. HIPREX [Concomitant]
     Active Substance: METHENAMINE HIPPURATE
     Dosage: 1 G, BID
     Route: 048

REACTIONS (15)
  - Atrial flutter [Unknown]
  - Cardiac failure congestive [Unknown]
  - Cardiac failure [Unknown]
  - Palpitations [Unknown]
  - Anaemia [Unknown]
  - Atrial fibrillation [Unknown]
  - Metabolic acidosis [Unknown]
  - Electrocardiogram QT prolonged [Unknown]
  - Cystitis [Unknown]
  - Atrial flutter [Unknown]
  - Hypotension [Unknown]
  - Right atrial dilatation [Unknown]
  - Nasal congestion [Unknown]
  - Constipation [Unknown]
  - Fungal infection [Unknown]

NARRATIVE: CASE EVENT DATE: 201010
